FAERS Safety Report 10344942 (Version 2)
Quarter: 2014Q3

REPORT INFORMATION
  Report Type: Spontaneous
  Country: US (occurrence: None)
  Receive Date: 20140724
  Receipt Date: 20140811
  Transmission Date: 20150326
  Serious: Yes (Death, Other)
  Sender: FDA-Public Use
  Company Number: AUR-APL-2014-07832

PATIENT
  Age: 45 Year
  Sex: Female

DRUGS (1)
  1. ESCITALOPRAM [Suspect]
     Active Substance: ESCITALOPRAM OXALATE
     Indication: DEPRESSION

REACTIONS (15)
  - Clonus [None]
  - Heart rate abnormal [None]
  - Decerebrate posture [None]
  - Coma [None]
  - Confusional state [None]
  - Condition aggravated [None]
  - Brain oedema [None]
  - Blood pressure increased [None]
  - Muscle rigidity [None]
  - Cerebral vasoconstriction [None]
  - Hyperreflexia [None]
  - Posterior reversible encephalopathy syndrome [None]
  - Cerebral infarction [None]
  - Subarachnoid haemorrhage [None]
  - Headache [None]
